FAERS Safety Report 4829944-3 (Version None)
Quarter: 2005Q4

REPORT INFORMATION
  Report Type: 
  Country: None (occurrence: None)
  Receive Date: 20051115
  Receipt Date: 20051115
  Transmission Date: 20060501
  Serious: Yes (Hospitalization)
  Sender: FDA-Public Use
  Company Number: None

PATIENT
  Age: 62 Year
  Sex: Male
  Weight: 68.5 kg

DRUGS (6)
  1. OXYCODONE 5 MG TABLET [Suspect]
     Indication: BACK PAIN
     Dosage: 10 MG PO Q 6 HRS PRN
     Route: 048
     Dates: start: 20010914
  2. SIMVASTATIN [Concomitant]
  3. SENNA [Concomitant]
  4. CYCLOBENZAPRINE HCL [Concomitant]
  5. CIMETIDINE [Concomitant]
  6. SYNTHROID [Concomitant]

REACTIONS (5)
  - ANOREXIA [None]
  - CONDITION AGGRAVATED [None]
  - CONSTIPATION [None]
  - NAUSEA [None]
  - VOMITING [None]
